FAERS Safety Report 8476628 (Version 3)
Quarter: 2012Q4

REPORT INFORMATION
  Report Type: 
  Country: US (occurrence: US)
  Receive Date: 20120326
  Receipt Date: 20120921
  Transmission Date: 20130627
  Serious: Yes (Hospitalization, Other)
  Sender: FDA-Public Use
  Company Number: US-009507513-1203USA02831

PATIENT

DRUGS (10)
  1. FOSAMAX [Suspect]
     Indication: OSTEOPOROSIS
     Dosage: 10 mg, UNK
     Route: 048
     Dates: start: 200001, end: 200010
  2. FOSAMAX [Suspect]
     Dosage: 70 mg, qw
     Route: 048
     Dates: start: 200011, end: 201006
  3. FOSAMAX [Suspect]
     Indication: OSTEOPOROSIS
     Route: 048
  4. NEXIUM [Concomitant]
     Dosage: 40 mg, qd
  5. ASTELIN (AZELASTINE HYDROCHLORIDE) [Concomitant]
  6. ESTROGENS (UNSPECIFIED) [Concomitant]
     Dosage: UNK
     Dates: start: 1995
  7. UNIRETIC [Concomitant]
     Dosage: 15/25 mg  daily
  8. TOPROL XL TABLETS [Concomitant]
     Dosage: 25 mg, qd
  9. METOPROLOL [Concomitant]
  10. PATANOL [Concomitant]

REACTIONS (37)
  - Intramedullary rod insertion [Unknown]
  - Cervicobrachial syndrome [Unknown]
  - Spondylolisthesis [Unknown]
  - Radiculopathy [Recovering/Resolving]
  - Lumbar spinal stenosis [Unknown]
  - Synovial cyst [Unknown]
  - Spinal cord drainage [Unknown]
  - Salpingo-oophorectomy unilateral [Unknown]
  - Ectopic pregnancy [Unknown]
  - Anaemia [Unknown]
  - Low turnover osteopathy [Unknown]
  - Medical device removal [Unknown]
  - Foot fracture [Unknown]
  - Pubis fracture [Unknown]
  - Urinary tract infection [Unknown]
  - Osteoarthritis [Unknown]
  - Osteopenia [Unknown]
  - Herpes dermatitis [Unknown]
  - Conjunctivitis [Unknown]
  - Muscular weakness [Recovered/Resolved]
  - Foot fracture [Unknown]
  - Pelvic fracture [Unknown]
  - Colon adenoma [Unknown]
  - Stress fracture [Unknown]
  - Limb injury [Unknown]
  - Viral upper respiratory tract infection [Unknown]
  - Stress ulcer [Unknown]
  - Somnolence [Unknown]
  - Wrist deformity [Unknown]
  - Arthropod bite [Unknown]
  - Dermatitis contact [Unknown]
  - Ileus [Recovered/Resolved]
  - Pain in extremity [Unknown]
  - Arthralgia [Unknown]
  - Back pain [Unknown]
  - Constipation [Unknown]
  - Nausea [Recovered/Resolved]
